FAERS Safety Report 9603065 (Version 2)
Quarter: 2013Q4

REPORT INFORMATION
  Report Type: Spontaneous
  Country: JP (occurrence: JP)
  Receive Date: 20131007
  Receipt Date: 20131023
  Transmission Date: 20140711
  Serious: Yes (Other)
  Sender: FDA-Public Use
  Company Number: PHHY2013JP108324

PATIENT
  Age: 28 Year
  Sex: Female

DRUGS (2)
  1. CARBAMAZEPINE [Suspect]
     Indication: ENCEPHALITIS
     Dosage: UNK UKN, DECREASED DOSE
  2. CARBAMAZEPINE [Suspect]
     Dosage: 1500 MG, DAILY

REACTIONS (4)
  - Partial seizures [Unknown]
  - Inappropriate antidiuretic hormone secretion [Unknown]
  - Hyponatraemia [Unknown]
  - Hypothyroidism [Unknown]
